FAERS Safety Report 4549350-9 (Version None)
Quarter: 2005Q1

REPORT INFORMATION
  Report Type: 
  Country: None (occurrence: None)
  Receive Date: 20050110
  Receipt Date: 20050110
  Transmission Date: 20050727
  Serious: Yes (Hospitalization, Disabling, Other)
  Sender: FDA-Public Use
  Company Number: None

PATIENT
  Sex: Female

DRUGS (8)
  1. CORICIDIN D SRT [Suspect]
     Indication: HYPERSENSITIVITY
     Dosage: * ORAL
     Route: 048
     Dates: start: 19961219, end: 19961219
  2. CORICIDIN D SRT [Suspect]
     Indication: NASOPHARYNGITIS
     Dosage: * ORAL
     Route: 048
     Dates: start: 19961219, end: 19961219
  3. CONTAC 12 HOUR [Suspect]
     Indication: HYPERSENSITIVITY
     Dosage: * ORAL
     Route: 048
     Dates: start: 19961219, end: 19961219
  4. CONTAC 12 HOUR [Suspect]
     Indication: NASOPHARYNGITIS
     Dosage: * ORAL
     Route: 048
     Dates: start: 19961219, end: 19961219
  5. ALLEREST TABLETS [Suspect]
     Indication: HYPERSENSITIVITY
     Dosage: * ORAL
     Route: 048
     Dates: start: 19961219, end: 19961219
  6. ALLEREST TABLETS [Suspect]
     Indication: NASOPHARYNGITIS
     Dosage: * ORAL
     Route: 048
     Dates: start: 19961219, end: 19961219
  7. ROBITUSSIN-CF SYRUP [Suspect]
     Indication: HYPERSENSITIVITY
     Dosage: * ORAL
     Route: 048
     Dates: start: 19961219, end: 19961219
  8. ROBITUSSIN-CF SYRUP [Suspect]
     Indication: NASOPHARYNGITIS
     Dosage: * ORAL
     Route: 048
     Dates: start: 19961219, end: 19961219

REACTIONS (4)
  - FEAR [None]
  - INJURY [None]
  - ISCHAEMIC STROKE [None]
  - NERVOUS SYSTEM DISORDER [None]
